FAERS Safety Report 17349599 (Version 1)
Quarter: 2020Q1

REPORT INFORMATION
  Report Type: Spontaneous
  Country: US (occurrence: US)
  Receive Date: 20200130
  Receipt Date: 20200130
  Transmission Date: 20200409
  Serious: No
  Sender: FDA-Public Use
  Company Number: US-SA-2020SA021853

PATIENT
  Sex: Male

DRUGS (1)
  1. DUPIXENT [Suspect]
     Active Substance: DUPILUMAB
     Indication: ECZEMA
     Dosage: 300 MG, QOW
     Route: 058
     Dates: start: 201906

REACTIONS (6)
  - Dizziness [Unknown]
  - Chills [Recovering/Resolving]
  - Hyperhidrosis [Unknown]
  - Feeling hot [Unknown]
  - Influenza [Unknown]
  - Headache [Unknown]

NARRATIVE: CASE EVENT DATE: 2019
